FAERS Safety Report 18731148 (Version 2)
Quarter: 2021Q1

REPORT INFORMATION
  Report Type: Report from Study
  Country: CO (occurrence: CO)
  Receive Date: 20210112
  Receipt Date: 20210217
  Transmission Date: 20210419
  Serious: Yes (Hospitalization, Other)
  Sender: FDA-Public Use
  Company Number: CO-AMGEN-COLSL2020181663

PATIENT
  Age: 34 Year
  Sex: Female

DRUGS (4)
  1. ARTIFICIAL TEAR [HYPROMELLOSE] [Concomitant]
     Indication: BURNING SENSATION
     Dosage: UNK
  2. ARTIFICIAL TEAR [HYPROMELLOSE] [Concomitant]
     Indication: PRURITUS
  3. VECTIBIX [Suspect]
     Active Substance: PANITUMUMAB
     Indication: COLORECTAL CANCER METASTATIC
     Dosage: 350 MILLIGRAM, Q2WK
     Route: 042
     Dates: start: 20201019
  4. ARTIFICIAL TEAR [HYPROMELLOSE] [Concomitant]
     Indication: CONDITION AGGRAVATED

REACTIONS (7)
  - Metastases to bone [Recovering/Resolving]
  - Condition aggravated [Recovering/Resolving]
  - Pain in extremity [Recovered/Resolved]
  - Pruritus [Recovering/Resolving]
  - Muscular weakness [Recovered/Resolved]
  - Inflammation [Recovering/Resolving]
  - Burning sensation [Recovering/Resolving]

NARRATIVE: CASE EVENT DATE: 2020
